FAERS Safety Report 11872235 (Version 4)
Quarter: 2016Q1

REPORT INFORMATION
  Report Type: Report from Study
  Country: JP (occurrence: JP)
  Receive Date: 20151228
  Receipt Date: 20160126
  Transmission Date: 20160526
  Serious: Yes (Death)
  Sender: FDA-Public Use
  Company Number: JP-OTSUKA-2015_017073

PATIENT
  Age: 85 Year
  Sex: Female
  Weight: 43.3 kg

DRUGS (20)
  1. BISOPROLOL FUMARATE. [Concomitant]
     Active Substance: BISOPROLOL FUMARATE
     Indication: CARDIAC FAILURE
     Dosage: 2.5 MG, DAILY DOSE
     Route: 048
     Dates: start: 20150422, end: 20150503
  2. TAKELDA [Concomitant]
     Active Substance: ASPIRIN\LANSOPRAZOLE
     Indication: PRODUCT USED FOR UNKNOWN INDICATION
     Dosage: 1 DF, DAILY DOSE
     Route: 048
     Dates: end: 20150503
  3. ALPINY [Concomitant]
     Active Substance: ACETAMINOPHEN
     Indication: PRODUCT USED FOR UNKNOWN INDICATION
     Dosage: 200 MG, DAILY DOSE
     Route: 054
     Dates: start: 20150502, end: 20150503
  4. SOLDEM 1 [Concomitant]
     Active Substance: DEXTROSE\SODIUM CHLORIDE\SODIUM LACTATE
     Indication: PRODUCT USED FOR UNKNOWN INDICATION
     Dosage: 500 ML, DAILY DOSE
     Route: 041
     Dates: start: 20150422, end: 20150429
  5. TOLVAPTAN [Suspect]
     Active Substance: TOLVAPTAN
     Dosage: 7.5 MG, QD (AFTER DINNER)
     Route: 048
     Dates: start: 20150422, end: 20150422
  6. CALONAL [Concomitant]
     Active Substance: ACETAMINOPHEN
     Indication: PRODUCT USED FOR UNKNOWN INDICATION
     Dosage: 400 MG, DAILY DOSE
     Route: 048
     Dates: end: 20150428
  7. FUROSEMIDE. [Concomitant]
     Active Substance: FUROSEMIDE
     Indication: PRODUCT USED FOR UNKNOWN INDICATION
  8. MIYA-BM [Concomitant]
     Active Substance: CLOSTRIDIUM BUTYRICUM SPORES STRAIN M-55
     Indication: PRODUCT USED FOR UNKNOWN INDICATION
     Dosage: 9 G, DAILY DOSE
     Route: 048
     Dates: start: 20150501, end: 20150503
  9. BROTIZOLAM [Concomitant]
     Active Substance: BROTIZOLAM
     Indication: PRODUCT USED FOR UNKNOWN INDICATION
     Dosage: 0.25 MG, DAILY DOSE
     Route: 048
     Dates: start: 20150502, end: 20150503
  10. LOSARTAN K [Concomitant]
     Indication: CARDIAC FAILURE
     Dosage: 0.5 DF, DAILY DOSE
     Route: 048
     Dates: end: 20150503
  11. CARVEDILOL. [Concomitant]
     Active Substance: CARVEDILOL
     Indication: CARDIAC FAILURE
     Dosage: 5 MG, DAILY DOSE
     Route: 048
     Dates: end: 20150503
  12. TOLVAPTAN [Suspect]
     Active Substance: TOLVAPTAN
     Dosage: 7.5 MG, QD (AFTER LUNCH)
     Route: 048
     Dates: start: 20150423, end: 20150503
  13. BISOPROLOL [Concomitant]
     Active Substance: BISOPROLOL
     Indication: CARDIAC FAILURE
     Dosage: 1 DF, DAILY DOSE
     Route: 062
     Dates: start: 20150423, end: 20150503
  14. MOSAPRIDE CITRATE [Concomitant]
     Active Substance: MOSAPRIDE CITRATE
     Indication: PRODUCT USED FOR UNKNOWN INDICATION
     Dosage: 15 MG, DAILY DOSE
     Route: 048
     Dates: start: 20150501, end: 20150503
  15. TOLVAPTAN [Suspect]
     Active Substance: TOLVAPTAN
     Indication: FLUID RETENTION
     Dosage: UNK
     Route: 048
  16. BFLUID [Concomitant]
     Active Substance: AMINO ACIDS\DEXTROSE\ELECTROLYTES NOS\VITAMINS
     Indication: PRODUCT USED FOR UNKNOWN INDICATION
     Dosage: 500 ML, DAILY DOSE
     Route: 041
     Dates: start: 20150430, end: 20150503
  17. FERROUS CITRATE [Concomitant]
     Active Substance: FERROUS CITRATE
     Indication: PRODUCT USED FOR UNKNOWN INDICATION
     Dosage: 50 MG, DAILY DOSE
     Route: 048
     Dates: end: 20150503
  18. FUROSEMIDE. [Concomitant]
     Active Substance: FUROSEMIDE
     Indication: CARDIAC FAILURE
     Dosage: 40 MG, DAILY DOSE
     Route: 048
     Dates: end: 20150503
  19. SENNOSIDE A+B CALCIUM [Concomitant]
     Active Substance: SENNOSIDES A AND B
     Indication: PRODUCT USED FOR UNKNOWN INDICATION
     Dosage: 0.15 G, DAILY DOSE
     Route: 048
     Dates: start: 20150501, end: 20150503
  20. ETIZOLAM [Concomitant]
     Active Substance: ETIZOLAM
     Indication: PRODUCT USED FOR UNKNOWN INDICATION
     Dosage: 1 G, DAILY DOSE
     Route: 048
     Dates: start: 20150502, end: 20150503

REACTIONS (2)
  - Metabolic acidosis [Fatal]
  - Renal failure [Fatal]

NARRATIVE: CASE EVENT DATE: 20150503
